FAERS Safety Report 25948767 (Version 1)
Quarter: 2025Q4

REPORT INFORMATION
  Report Type: Spontaneous
  Country: US (occurrence: None)
  Receive Date: 20251021
  Receipt Date: 20251021
  Transmission Date: 20260117
  Serious: Yes (Hospitalization)
  Sender: FDA-CTU
  Company Number: None

PATIENT
  Age: 75 Year
  Sex: Male
  Weight: 103.05 kg

DRUGS (18)
  1. SIMPONI ARIA [Suspect]
     Active Substance: GOLIMUMAB
  2. Metoprolol ER succinate25mg [Concomitant]
  3. MetformanER [Concomitant]
  4. TAMSULOSIN [Concomitant]
     Active Substance: TAMSULOSIN
  5. Allopurinol 200mg Tablets [Concomitant]
  6. GLIMEPIRIDE [Concomitant]
     Active Substance: GLIMEPIRIDE
  7. Xaltan lanaprost 0.00 ft 05% [Concomitant]
  8. IRBESARTAN [Concomitant]
     Active Substance: IRBESARTAN
  9. LEVOTHYROXINE [Concomitant]
     Active Substance: LEVOTHYROXINE
  10. simponi aria infusion [Concomitant]
  11. Toujeo 30 units [Concomitant]
  12. ELIQUIS [Concomitant]
     Active Substance: APIXABAN
  13. finisteroid 5mg [Concomitant]
  14. ATORVASTATIN [Concomitant]
     Active Substance: ATORVASTATIN
  15. Sodium Barcarbinate 650MG [Concomitant]
  16. TRAMADOL [Concomitant]
     Active Substance: TRAMADOL
  17. CYANOCOBALAMIN [Concomitant]
     Active Substance: CYANOCOBALAMIN
  18. TYLENOL [Concomitant]
     Active Substance: ACETAMINOPHEN

REACTIONS (11)
  - Wrong technique in product usage process [None]
  - Vein rupture [None]
  - Product administered at inappropriate site [None]
  - Feeling abnormal [None]
  - Illness [None]
  - Dizziness [None]
  - Feeling abnormal [None]
  - Pneumonia [None]
  - Bacterial infection [None]
  - Infusion site pain [None]
  - Infusion site pain [None]

NARRATIVE: CASE EVENT DATE: 20250724
